FAERS Safety Report 9288938 (Version 2)
Quarter: 2013Q2

REPORT INFORMATION
  Report Type: Not Available
  Country: SE (occurrence: SE)
  Receive Date: 20130514
  Receipt Date: 20130605
  Transmission Date: 20140414
  Serious: Yes (Hospitalization, Other)
  Sender: FDA-Public Use
  Company Number: SE-PURDUE-GBR-2013-0013912

PATIENT
  Age: 74 Year
  Sex: Female

DRUGS (11)
  1. NORSPAN 5 MIKROGRAM/ TIMME DEPOTPLASTER [Suspect]
     Indication: PAIN
     Dosage: 5 MCG, UNK
     Route: 062
     Dates: start: 20130201, end: 20130213
  2. MORPHINE [Suspect]
     Indication: PAIN
     Dosage: 2.5/5 MG PRN
     Route: 042
     Dates: start: 20130131, end: 20130205
  3. MORPHINE [Suspect]
     Dosage: 10 MG, PRN
     Route: 065
     Dates: start: 20130204, end: 20130205
  4. PULMICORT TURBUHALER [Concomitant]
  5. ALVEDON [Concomitant]
     Dosage: 665 MG, UNK
  6. PRIMPERAN [Concomitant]
  7. CREON 40000 [Concomitant]
  8. BUDESONIDE EASYHALER [Concomitant]
     Dosage: 64 MCG, UNK
     Route: 055
  9. BETNOVAT                           /00008501/ [Concomitant]
  10. OMEPRAZOLE [Concomitant]
     Dosage: 20 MG, UNK
  11. CILAXORAL [Concomitant]
     Dosage: 7.5 MG/ML, UNK

REACTIONS (7)
  - Sensation of foreign body [Recovered/Resolved]
  - Dysphagia [Recovered/Resolved]
  - Faeces discoloured [Recovered/Resolved]
  - Diarrhoea [Recovered/Resolved]
  - Nausea [Recovered/Resolved]
  - Vomiting [Recovered/Resolved]
  - Weight decreased [Recovered/Resolved]
